FAERS Safety Report 4992824-7 (Version None)
Quarter: 2006Q2

REPORT INFORMATION
  Report Type: 
  Country: None (occurrence: None)
  Receive Date: 20060504
  Receipt Date: 20060104
  Transmission Date: 20061013
  Serious: Yes (Hospitalization)
  Sender: FDA-Public Use
  Company Number: US-MERCK-0601USA00639

PATIENT
  Age: 72 Year
  Sex: Male
  Weight: 78 kg

DRUGS (15)
  1. VIOXX [Suspect]
     Indication: ARTHRALGIA
     Route: 048
     Dates: start: 20000124, end: 20011214
  2. VIOXX [Suspect]
     Route: 048
     Dates: start: 20000124, end: 20011214
  3. ALLOPURINOL [Concomitant]
     Route: 065
     Dates: start: 19990524
  4. DIABETA [Concomitant]
     Route: 065
  5. CLARITIN [Concomitant]
     Route: 065
  6. GLUCOPHAGE [Concomitant]
     Route: 065
  7. AVANDIA [Concomitant]
     Route: 065
  8. PEPCID [Concomitant]
     Route: 065
  9. SYNVISC [Concomitant]
     Route: 065
     Dates: start: 19991001, end: 20000101
  10. ZYLOPRIM [Concomitant]
     Route: 065
     Dates: start: 20011016
  11. HYDROCODONE BITARTRATE [Concomitant]
     Route: 065
  12. PREVACID [Concomitant]
     Route: 065
  13. LAMISIL [Concomitant]
     Route: 065
  14. AMOXICILLIN [Concomitant]
     Route: 065
  15. LIPITOR [Concomitant]
     Route: 065

REACTIONS (10)
  - ATRIAL FLUTTER [None]
  - CARDIOMEGALY [None]
  - CAROTID ARTERY STENOSIS [None]
  - CORONARY ARTERY DISEASE [None]
  - HYPERTENSION [None]
  - MYOCARDIAL INFARCTION [None]
  - OEDEMA PERIPHERAL [None]
  - OPEN WOUND [None]
  - PLEURAL EFFUSION [None]
  - TRANSIENT ISCHAEMIC ATTACK [None]
